FAERS Safety Report 9166386 (Version 1)
Quarter: 2013Q1

REPORT INFORMATION
  Report Type: Spontaneous
  Country: US (occurrence: US)
  Receive Date: 20130315
  Receipt Date: 20130315
  Transmission Date: 20140127
  Serious: No
  Sender: FDA-Public Use
  Company Number: US-TEVA-391510USA

PATIENT
  Sex: Female
  Weight: 88.98 kg

DRUGS (8)
  1. PROAIR HFA [Suspect]
     Indication: ASTHMA
     Route: 055
  2. HYDROXYZINE [Concomitant]
     Route: 048
  3. BENZTROPEINE [Concomitant]
     Route: 048
  4. PRAZOSIN [Concomitant]
     Route: 048
  5. CLOZARIL [Concomitant]
     Route: 048
  6. CRYSELLE [Concomitant]
     Route: 048
  7. FLOVENT [Concomitant]
     Route: 055
  8. COMBIVENT [Concomitant]
     Route: 055

REACTIONS (1)
  - Drug ineffective [Unknown]
